FAERS Safety Report 16861747 (Version 1)
Quarter: 2019Q3

REPORT INFORMATION
  Report Type: Report from Study
  Country: None (occurrence: US)
  Receive Date: 20190927
  Receipt Date: 20190927
  Transmission Date: 20191005
  Serious: Yes (Life-Threatening, Hospitalization)
  Sender: FDA-Public Use
  Company Number: US-ABBVIE-19P-163-2936719-00

PATIENT
  Age: 5 Year
  Sex: Female
  Weight: 22 kg

DRUGS (36)
  1. ONDANSETRON [Concomitant]
     Active Substance: ONDANSETRON
     Indication: NAUSEA
     Route: 042
     Dates: start: 20190823
  2. DIPHENHYDRAMINE. [Concomitant]
     Active Substance: DIPHENHYDRAMINE
     Indication: VOMITING
  3. OLANZAPINE. [Concomitant]
     Active Substance: OLANZAPINE
     Indication: ADJUSTMENT DISORDER WITH ANXIETY
     Route: 048
     Dates: start: 20190914
  4. CLOTRIMAZOLE. [Concomitant]
     Active Substance: CLOTRIMAZOLE
     Indication: PURPURA
     Dosage: 1 APP
     Route: 061
     Dates: start: 20190823
  5. DOCUSATE [Concomitant]
     Active Substance: DOCUSATE
     Indication: CONSTIPATION
     Route: 048
     Dates: start: 20190824
  6. SODIUM BICARBONATE. [Concomitant]
     Active Substance: SODIUM BICARBONATE
     Indication: DENTAL DISORDER PROPHYLAXIS
     Route: 048
     Dates: start: 20190823
  7. VANCOMYCIN [Concomitant]
     Active Substance: VANCOMYCIN
     Indication: BACTERAEMIA
  8. CLONAZEPAM. [Concomitant]
     Active Substance: CLONAZEPAM
     Indication: ANXIETY
  9. LIDOCAINE. [Concomitant]
     Active Substance: LIDOCAINE
     Indication: PAIN
     Dosage: 1 APP
     Route: 061
     Dates: start: 20190828
  10. SULFAMETHOXAZOLE-TRIMETHOPRIM [Concomitant]
     Active Substance: SULFAMETHOXAZOLE\TRIMETHOPRIM
     Indication: INFECTION PROPHYLAXIS
     Route: 048
     Dates: start: 20190823
  11. CEFEPIME [Concomitant]
     Active Substance: CEFEPIME HYDROCHLORIDE
     Indication: BACTERAEMIA
  12. ALLOPURINOL. [Concomitant]
     Active Substance: ALLOPURINOL
     Indication: PROPHYLAXIS
     Route: 048
     Dates: start: 20190823, end: 20190901
  13. VINCRISTINE [Suspect]
     Active Substance: VINCRISTINE
     Route: 042
     Dates: start: 20190914, end: 20190914
  14. ACETAMINOPHEN. [Concomitant]
     Active Substance: ACETAMINOPHEN
     Indication: HEADACHE
     Route: 048
     Dates: start: 20190824
  15. CEFEPIME [Concomitant]
     Active Substance: CEFEPIME HYDROCHLORIDE
     Indication: FEBRILE NEUTROPENIA
     Route: 042
     Dates: start: 20190911, end: 20190919
  16. VENETOCLAX. [Suspect]
     Active Substance: VENETOCLAX
     Route: 048
     Dates: start: 20190831, end: 20190918
  17. DEXAMETHASONE. [Suspect]
     Active Substance: DEXAMETHASONE
     Indication: ACUTE LYMPHOCYTIC LEUKAEMIA RECURRENT
     Dosage: DAYS 1-5 AND 15-19
     Route: 048
     Dates: start: 20190829, end: 20190916
  18. VINCRISTINE [Suspect]
     Active Substance: VINCRISTINE
     Indication: ACUTE LYMPHOCYTIC LEUKAEMIA RECURRENT
     Route: 042
     Dates: start: 20190829, end: 20190829
  19. PEGASPARAGINASE [Suspect]
     Active Substance: PEGASPARGASE
     Indication: ACUTE LYMPHOCYTIC LEUKAEMIA RECURRENT
     Dosage: 1250 IU/M2
     Route: 042
     Dates: start: 20190829, end: 20190829
  20. PEGASPARAGINASE [Suspect]
     Active Substance: PEGASPARGASE
     Dosage: 1250 IU/M2
     Route: 042
     Dates: start: 20190914, end: 20190914
  21. GABAPENTIN. [Concomitant]
     Active Substance: GABAPENTIN
     Indication: HEADACHE
     Route: 048
     Dates: start: 20190828
  22. CLONAZEPAM. [Concomitant]
     Active Substance: CLONAZEPAM
     Indication: IRRITABILITY
     Route: 048
     Dates: start: 20190831
  23. DIPHENHYDRAMINE. [Concomitant]
     Active Substance: DIPHENHYDRAMINE
     Indication: NAUSEA
     Route: 042
     Dates: start: 20190827
  24. LEVOFLOXACIN. [Concomitant]
     Active Substance: LEVOFLOXACIN
     Indication: PROPHYLAXIS
     Route: 048
     Dates: start: 20190827
  25. MELATONIN [Concomitant]
     Active Substance: MELATONIN
     Indication: INSOMNIA
     Route: 048
     Dates: start: 20190823
  26. ABT-263 [Suspect]
     Active Substance: NAVITOCLAX
     Indication: ACUTE LYMPHOCYTIC LEUKAEMIA RECURRENT
     Dosage: BEGINNING ON DAY 3
     Route: 048
     Dates: start: 20190831, end: 20190918
  27. HEPARIN FLUSH [Concomitant]
     Active Substance: HEPARIN SODIUM
     Indication: CATHETER MANAGEMENT
     Route: 042
     Dates: start: 20190826
  28. ONDANSETRON [Concomitant]
     Active Substance: ONDANSETRON
     Indication: VOMITING
  29. MICAFUNGIN. [Concomitant]
     Active Substance: MICAFUNGIN SODIUM
     Indication: INFECTION PROPHYLAXIS
     Dates: start: 20190827
  30. MORPHINE [Concomitant]
     Active Substance: MORPHINE
     Indication: HEADACHE
     Route: 042
     Dates: start: 20190823
  31. RANITIDINE. [Concomitant]
     Active Substance: RANITIDINE
     Indication: GASTROINTESTINAL DISORDER PROPHYLAXIS
     Route: 048
     Dates: start: 20190829
  32. LEUCOVORIN. [Concomitant]
     Active Substance: LEUCOVORIN
     Indication: CHEMOTHERAPY
     Route: 037
     Dates: start: 20190829
  33. VENETOCLAX. [Suspect]
     Active Substance: VENETOCLAX
     Indication: ACUTE LYMPHOCYTIC LEUKAEMIA RECURRENT
     Route: 048
     Dates: start: 20190829, end: 20190830
  34. LEUCOVORIN. [Concomitant]
     Active Substance: LEUCOVORIN
     Indication: CHEMOTHERAPY
  35. VANCOMYCIN [Concomitant]
     Active Substance: VANCOMYCIN
     Indication: FEBRILE NEUTROPENIA
     Route: 042
     Dates: start: 20190911, end: 20190913
  36. LANTHANUM CARBONATE. [Concomitant]
     Active Substance: LANTHANUM CARBONATE
     Indication: PROPHYLAXIS
     Route: 048
     Dates: start: 20190823, end: 20190901

REACTIONS (1)
  - Sepsis [Not Recovered/Not Resolved]

NARRATIVE: CASE EVENT DATE: 20190919
